FAERS Safety Report 7789390-X (Version None)
Quarter: 2011Q3

REPORT INFORMATION
  Report Type: 
  Country: None (occurrence: None)
  Receive Date: 20110930
  Receipt Date: 20110916
  Transmission Date: 20111222
  Serious: Yes (Hospitalization)
  Sender: FDA-Public Use
  Company Number: US-BAYER-2011-011231

PATIENT
  Age: 30 Year
  Sex: Female
  Weight: 101 kg

DRUGS (9)
  1. ANTIBIOTICS [Concomitant]
  2. OXCARBAZEPINE [Concomitant]
     Indication: CONVULSION
     Dosage: UNK
     Dates: start: 20101101, end: 20101201
  3. DROSPIRENONE AND ETHINYL ESTRADIOL [Suspect]
     Dosage: UNK
     Dates: start: 20100124, end: 20100213
  4. DROSPIRENONE AND ETHINYL ESTRADIOL [Suspect]
     Indication: POLYCYSTIC OVARIES
     Dosage: UNK
     Route: 048
     Dates: start: 20090225, end: 20090701
  5. SPRINTEC [Concomitant]
     Dosage: UNK
     Dates: start: 20091110
  6. DEPO-PROVERA [Concomitant]
  7. METFORMIN HCL [Concomitant]
     Dosage: UNK
     Dates: start: 20100112
  8. STEROIDS [Concomitant]
  9. AMOC/K CLAV [Concomitant]
     Dosage: UNK
     Dates: start: 20100127

REACTIONS (8)
  - MENTAL DISORDER [None]
  - PAIN [None]
  - DEPRESSION [None]
  - DYSPNOEA [None]
  - ANXIETY [None]
  - CHEST PAIN [None]
  - PULMONARY EMBOLISM [None]
  - POST-TRAUMATIC STRESS DISORDER [None]
